FAERS Safety Report 6760769-8 (Version None)
Quarter: 2010Q2

REPORT INFORMATION
  Report Type: 
  Country: None (occurrence: None)
  Receive Date: 20100608
  Receipt Date: 20100527
  Transmission Date: 20101027
  Serious: Yes (Other)
  Sender: FDA-Public Use
  Company Number: US-PFIZER INC-2010067308

PATIENT
  Sex: Female
  Weight: 57.596 kg

DRUGS (3)
  1. XALATAN [Suspect]
     Indication: INTRAOCULAR PRESSURE INCREASED
     Dosage: 1 DROP IN RIGHT EYE BEFORE BEDTIME EVERY SUNDAY AND WEDNESDAY
     Dates: start: 20090101, end: 20100101
  2. XALATAN [Suspect]
     Dosage: 1 DROP IN LEFT EYE AND RIGHT EYE ON WEDNESDAY AND SUNDAY NIGHTS PRIOR TO BEDTIME
     Route: 047
     Dates: start: 20100101
  3. VITAMINS [Concomitant]

REACTIONS (4)
  - DIZZINESS [None]
  - INAPPROPRIATE SCHEDULE OF DRUG ADMINISTRATION [None]
  - INTRAOCULAR PRESSURE INCREASED [None]
  - SLEEP DISORDER [None]
